FAERS Safety Report 5582637-X (Version None)
Quarter: 2008Q1

REPORT INFORMATION
  Report Type: 
  Country: None (occurrence: None)
  Receive Date: 20080107
  Receipt Date: 20071231
  Transmission Date: 20080703
  Serious: Yes (Other)
  Sender: FDA-Public Use
  Company Number: PHFR2007GB03612

PATIENT
  Age: 79 Year
  Sex: Male
  Weight: 69.5 kg

DRUGS (7)
  1. ZOMETA [Suspect]
     Indication: BONE DISORDER
     Dosage: 4 MG, QMO
     Route: 042
     Dates: start: 20050815, end: 20061001
  2. PAMIDRONATE DISODIUM [Suspect]
     Indication: BONE DISORDER
     Dosage: 90 MG, QMO
     Route: 042
     Dates: start: 20060822, end: 20070828
  3. LEVOTHYROXINE SODIUM [Concomitant]
     Indication: HYPOTHYROIDISM
     Dosage: 150 MG/DAY
     Route: 048
  4. DIGOXIN [Concomitant]
     Indication: ATRIAL FIBRILLATION
     Dosage: 125 MG/DAY
     Route: 048
  5. ASPIRIN [Concomitant]
     Indication: ATRIAL FIBRILLATION
     Dosage: 75 MG/DAY
     Route: 048
  6. TRAZODONE HCL [Concomitant]
     Indication: DEPRESSION
     Dosage: 50 MG/DAY
     Route: 048
  7. ALFUZOSIN HCL [Concomitant]
     Indication: PROSTATISM
     Dosage: 10 MG/DAY
     Route: 048

REACTIONS (4)
  - DEBRIDEMENT [None]
  - OSTEONECROSIS [None]
  - PAIN IN JAW [None]
  - TOOTH EXTRACTION [None]
